FAERS Safety Report 7518538-7 (Version None)
Quarter: 2011Q2

REPORT INFORMATION
  Report Type: 
  Country: None (occurrence: None)
  Receive Date: 20110601
  Receipt Date: 20110601
  Transmission Date: 20111010
  Serious: Yes (Other)
  Sender: FDA-Public Use
  Company Number: None

PATIENT
  Age: 21 Year
  Sex: Female
  Weight: 61.2356 kg

DRUGS (7)
  1. DARVOCET [Concomitant]
  2. MOBIC [Concomitant]
  3. DEPO-PROVERA [Suspect]
     Indication: CONTRACEPTION
     Dates: start: 19981110, end: 19990209
  4. MIDRIN [Concomitant]
  5. PROPRANOLOL [Concomitant]
  6. NEURONTIN [Concomitant]
  7. EXCEDRIN (MIGRAINE) [Concomitant]

REACTIONS (2)
  - ARTHRALGIA [None]
  - MIGRAINE [None]
